FAERS Safety Report 6975239-1 (Version None)
Quarter: 2010Q3

REPORT INFORMATION
  Report Type: 
  Country: None (occurrence: None)
  Receive Date: 20100910
  Receipt Date: 20090216
  Transmission Date: 20110219
  Serious: No
  Sender: FDA-Public Use
  Company Number: US-WYE-H08247009

PATIENT
  Sex: Female
  Weight: 81.72 kg

DRUGS (1)
  1. PRISTIQ [Suspect]
     Indication: ANXIETY
     Route: 048
     Dates: start: 20081201

REACTIONS (4)
  - ABNORMAL DREAMS [None]
  - FATIGUE [None]
  - POOR QUALITY SLEEP [None]
  - SOMNOLENCE [None]
